FAERS Safety Report 16366184 (Version 1)
Quarter: 2019Q2

REPORT INFORMATION
  Report Type: Spontaneous
  Country: US (occurrence: US)
  Receive Date: 20190529
  Receipt Date: 20190529
  Transmission Date: 20190711
  Serious: No
  Sender: FDA-Public Use
  Company Number: US-MYLANLABS-2019M1045937

PATIENT
  Sex: Female

DRUGS (2)
  1. XULANE [Suspect]
     Active Substance: ETHINYL ESTRADIOL\NORELGESTROMIN
     Indication: MENSTRUAL CYCLE MANAGEMENT
     Dosage: 150/35 MILLIGRAM, QD
     Dates: start: 201904
  2. XULANE [Suspect]
     Active Substance: ETHINYL ESTRADIOL\NORELGESTROMIN
     Indication: CONTRACEPTION

REACTIONS (9)
  - Application site swelling [Unknown]
  - Application site reaction [Unknown]
  - Application site mass [Unknown]
  - Application site pain [Unknown]
  - Application site erythema [Unknown]
  - Application site pruritus [Unknown]
  - Product adhesion issue [Unknown]
  - Urticaria [Unknown]
  - Application site rash [Recovered/Resolved with Sequelae]

NARRATIVE: CASE EVENT DATE: 201904
